FAERS Safety Report 5302305-9 (Version None)
Quarter: 2007Q1

REPORT INFORMATION
  Report Type: 
  Country: None (occurrence: None)
  Receive Date: 20070201
  Receipt Date: 20061211
  Transmission Date: 20070707
  Serious: No
  Sender: FDA-Public Use
  Company Number: 2006PV026762

PATIENT
  Age: 62 Year
  Sex: Female
  Weight: 81.1939 kg

DRUGS (3)
  1. BYETTA [Suspect]
     Indication: DIABETES MELLITUS NON-INSULIN-DEPENDENT
     Dosage: SEE IMAGE
     Route: 058
     Dates: start: 20060601, end: 20060701
  2. BYETTA [Suspect]
     Indication: DIABETES MELLITUS NON-INSULIN-DEPENDENT
     Dosage: SEE IMAGE
     Route: 058
     Dates: start: 20060701
  3. METFORMIN HCL [Concomitant]

REACTIONS (8)
  - ABDOMINAL PAIN UPPER [None]
  - DIARRHOEA [None]
  - INJECTION SITE RASH [None]
  - NASAL CONGESTION [None]
  - NASOPHARYNGITIS [None]
  - PHARYNGOLARYNGEAL PAIN [None]
  - VIRAL INFECTION [None]
  - VOMITING [None]
